FAERS Safety Report 9747211 (Version 4)
Quarter: 2014Q1

REPORT INFORMATION
  Report Type: Spontaneous
  Country: JP (occurrence: JP)
  Receive Date: 20131212
  Receipt Date: 20140102
  Transmission Date: 20141002
  Serious: Yes (Other)
  Sender: FDA-Public Use
  Company Number: JP-ROCHE-1308300

PATIENT
  Age: 43 Year
  Sex: Female
  Weight: 80 kg

DRUGS (11)
  1. ACTEMRA [Suspect]
     Indication: STILL^S DISEASE ADULT ONSET
     Route: 058
     Dates: start: 20131101, end: 20131114
  2. PREDONINE [Concomitant]
     Indication: STILL^S DISEASE ADULT ONSET
     Dosage: DOSAGE IS UNCERTAIN.
     Route: 065
  3. PREDNISOLONE [Concomitant]
     Indication: STILL^S DISEASE ADULT ONSET
     Route: 065
     Dates: start: 20131022
  4. NEXIUM [Concomitant]
     Indication: PROPHYLAXIS
     Route: 048
     Dates: start: 20130921
  5. DIFLUCAN [Concomitant]
     Indication: PROPHYLAXIS
     Route: 048
     Dates: start: 20131009
  6. CRESTOR [Concomitant]
     Indication: PROPHYLAXIS
     Route: 048
  7. METGLUCON [Concomitant]
     Indication: DIABETES MELLITUS
     Route: 048
  8. MAGMITT [Concomitant]
     Indication: PROPHYLAXIS
     Route: 048
  9. BACTRAMIN [Concomitant]
     Indication: PROPHYLAXIS
     Route: 048
     Dates: start: 20131009
  10. NOVORAPID [Concomitant]
     Indication: DIABETES MELLITUS
     Route: 058
     Dates: start: 20130920
  11. LEVEMIR [Concomitant]
     Indication: DIABETES MELLITUS
     Route: 058
     Dates: start: 20130920

REACTIONS (4)
  - Leukopenia [Recovered/Resolved]
  - Thrombocytopenia [Recovered/Resolved]
  - Febrile neutropenia [Recovered/Resolved]
  - Off label use [Unknown]
